FAERS Safety Report 13146952 (Version 1)
Quarter: 2017Q1

REPORT INFORMATION
  Report Type: Spontaneous
  Country: FR (occurrence: FR)
  Receive Date: 20170125
  Receipt Date: 20170125
  Transmission Date: 20170428
  Serious: Yes (Hospitalization, Other)
  Sender: FDA-Public Use
  Company Number: FR-ASTRAZENECA-2017SE07396

PATIENT
  Age: 27185 Day
  Sex: Female

DRUGS (16)
  1. AERIUS [Suspect]
     Active Substance: DESLORATADINE
     Route: 048
  2. TOPLEXIL [Suspect]
     Active Substance: UNSPECIFIED INGREDIENT
     Route: 048
  3. AEROSOLIZED DRUGS [Concomitant]
  4. SYMBICORT [Suspect]
     Active Substance: BUDESONIDE\FORMOTEROL FUMARATE DIHYDRATE
     Dosage: 400/12 UG 1 DF TWO TIMES A DAY
     Route: 055
  5. TERALITHE [Suspect]
     Active Substance: LITHIUM CARBONATE
     Route: 048
  6. MODOPAR [Suspect]
     Active Substance: BENSERAZIDE HYDROCHLORIDE\LEVODOPA
     Dosage: 62.5, 1 DF THREE TIMES A DAY
     Route: 048
  7. ENDOTHELON [Suspect]
     Active Substance: HERBALS
     Route: 048
  8. SERETIDE [Suspect]
     Active Substance: FLUTICASONE PROPIONATE\SALMETEROL XINAFOATE
     Dosage: 250/25 UG 1 DF TWO TIMES A DAY
     Route: 055
  9. LIPANTHYL [Suspect]
     Active Substance: FENOFIBRATE
     Route: 048
  10. NORDAZ [Suspect]
     Active Substance: NORDAZEPAM
     Route: 048
  11. TERALITHE [Suspect]
     Active Substance: LITHIUM CARBONATE
     Dosage: HALF TABLET IN THE MORNING
     Route: 048
  12. MUCOMYST [Suspect]
     Active Substance: ACETYLCYSTEINE
     Route: 048
  13. ROZEX (METRONIDAZOLE) [Suspect]
     Active Substance: METRONIDAZOLE
     Route: 003
  14. RHINOMAXIL [Suspect]
     Active Substance: BECLOMETHASONE DIPROPIONATE
     Route: 055
  15. HALDOL [Suspect]
     Active Substance: HALOPERIDOL
     Dosage: 2 MG/2 ML 7 DROPS PER DAY
     Route: 048
  16. URISPAS [Suspect]
     Active Substance: FLAVOXATE HYDROCHLORIDE
     Route: 048

REACTIONS (6)
  - Normochromic normocytic anaemia [Unknown]
  - Rhabdomyolysis [Unknown]
  - Metabolic acidosis [Recovered/Resolved]
  - Lymphopenia [Unknown]
  - Loss of consciousness [None]
  - Pneumonia aspiration [Unknown]

NARRATIVE: CASE EVENT DATE: 20161130
